FAERS Safety Report 7006257-5 (Version None)
Quarter: 2010Q3

REPORT INFORMATION
  Report Type: 
  Country: None (occurrence: None)
  Receive Date: 20100921
  Receipt Date: 20100907
  Transmission Date: 20110219
  Serious: No
  Sender: FDA-Public Use
  Company Number: US-PFIZER INC-2010113646

PATIENT
  Sex: Male
  Weight: 77 kg

DRUGS (13)
  1. ARTHROTEC [Suspect]
     Indication: ARTHRITIS
     Dosage: 75MG/200I?G, 1X/DAY
     Route: 048
  2. ARTHROTEC [Suspect]
     Dosage: 75MG/200I?G, 2X/DAY
     Route: 048
  3. LEVOTHYROXINE [Concomitant]
     Dosage: UNK
  4. PRILOSEC [Concomitant]
     Dosage: UNK
  5. BENICAR [Concomitant]
     Dosage: UNK
  6. TOPROL-XL [Concomitant]
     Dosage: UNK
  7. FOLTX [Concomitant]
     Dosage: UNK
  8. CRESTOR [Concomitant]
     Dosage: UNK
  9. LOVAZA [Concomitant]
     Dosage: UNK
  10. PLAVIX [Concomitant]
     Dosage: UNK
  11. FOSAMAX [Concomitant]
     Dosage: UNK
  12. AVODART [Concomitant]
     Dosage: UNK
  13. VITAMIN D [Concomitant]
     Dosage: UNK

REACTIONS (5)
  - BLOOD GLUCOSE ABNORMAL [None]
  - HIGH DENSITY LIPOPROTEIN DECREASED [None]
  - LOW DENSITY LIPOPROTEIN INCREASED [None]
  - TABLET ISSUE [None]
  - THYROID DISORDER [None]
